FAERS Safety Report 8580493-9 (Version None)
Quarter: 2012Q3

REPORT INFORMATION
  Report Type: 
  Country: None (occurrence: None)
  Receive Date: 20120808
  Receipt Date: 20120805
  Transmission Date: 20120928
  Serious: Yes (Other)
  Sender: FDA-Public Use
  Company Number: IL-PFIZER INC-2012190020

PATIENT
  Age: 88 Year
  Sex: Male

DRUGS (1)
  1. XALKORI [Suspect]
     Indication: ANAPLASTIC LYMPHOMA KINASE GENE MUTATION

REACTIONS (3)
  - PULMONARY CONGESTION [None]
  - DYSPNOEA [None]
  - OEDEMA PERIPHERAL [None]
